FAERS Safety Report 7562704-1 (Version None)
Quarter: 2011Q2

REPORT INFORMATION
  Report Type: 
  Country: None (occurrence: None)
  Receive Date: 20110622
  Receipt Date: 20110615
  Transmission Date: 20111010
  Serious: Yes (Other)
  Sender: FDA-Public Use
  Company Number: CA-PFIZER INC-2011131354

PATIENT
  Age: 69 Year
  Sex: Female

DRUGS (4)
  1. XALATAN [Suspect]
     Indication: GLAUCOMA
     Dosage: 1 GTT IN BOTH EYES, 1X/DAY
     Route: 047
  2. KETOROLAC [Concomitant]
     Indication: SWELLING
  3. KETOROLAC [Concomitant]
     Indication: PAIN
     Dosage: 1 GTT IN RIGHT EYE, 4X/DAY
  4. KETOROLAC [Concomitant]
     Indication: INFLAMMATION

REACTIONS (2)
  - CATARACT OPERATION [None]
  - EYE LASER SURGERY [None]
